FAERS Safety Report 15820477 (Version 3)
Quarter: 2019Q1

REPORT INFORMATION
  Report Type: Spontaneous
  Country: PH (occurrence: PH)
  Receive Date: 20190114
  Receipt Date: 20190121
  Transmission Date: 20190417
  Serious: Yes (Death, Other)
  Sender: FDA-Public Use
  Company Number: PH-009507513-1901PHL003345

PATIENT
  Sex: Male

DRUGS (1)
  1. ZERBAXA [Suspect]
     Active Substance: CEFTOLOZANE SULFATE\TAZOBACTAM SODIUM
     Indication: ABDOMINAL INFECTION
     Dosage: UNK

REACTIONS (3)
  - Cardiac arrest [Fatal]
  - White blood cell count decreased [Unknown]
  - Metastasis [Fatal]
